FAERS Safety Report 15446210 (Version 1)
Quarter: 2018Q3

REPORT INFORMATION
  Report Type: Report from Study
  Country: US (occurrence: US)
  Receive Date: 20180928
  Receipt Date: 20180928
  Transmission Date: 20181010
  Serious: No
  Sender: FDA-Public Use
  Company Number: US-AMGEN-USASP2018081582

PATIENT
  Age: 67 Year
  Sex: Female

DRUGS (8)
  1. PROLIA [Suspect]
     Active Substance: DENOSUMAB
     Indication: PRODUCT USED FOR UNKNOWN INDICATION
     Dosage: UNK
     Route: 065
  2. VITAMINS [Concomitant]
     Active Substance: VITAMINS
  3. OPTIC [Concomitant]
  4. VERAPAMIL [Concomitant]
     Active Substance: VERAPAMIL HYDROCHLORIDE
     Indication: SUPRAVENTRICULAR TACHYCARDIA
  5. BIOTIN [Concomitant]
     Active Substance: BIOTIN
  6. FISH OIL [Concomitant]
     Active Substance: FISH OIL
  7. MYRBETRIQ [Concomitant]
     Active Substance: MIRABEGRON
  8. ASA [Concomitant]
     Active Substance: ASPIRIN

REACTIONS (2)
  - Musculoskeletal stiffness [Unknown]
  - Gait disturbance [Unknown]
